FAERS Safety Report 8975598 (Version 1)
Quarter: 2012Q4

REPORT INFORMATION
  Report Type: 
  Country: US (occurrence: US)
  Receive Date: 20121219
  Receipt Date: 20121219
  Transmission Date: 20130627
  Serious: No
  Sender: FDA-Public Use
  Company Number: US-AMGEN-USASP2012069566

PATIENT
  Age: 62 Year
  Sex: Female
  Weight: 65.13 kg

DRUGS (12)
  1. PROLIA [Suspect]
     Indication: OSTEOPOROSIS POSTMENOPAUSAL
     Dosage: 60 mg, UNK
     Route: 058
     Dates: start: 20120507
  2. LIPITOR [Concomitant]
     Dosage: 40 mg, qd
  3. METOPROLOL [Concomitant]
     Dosage: 25 mg, qd
  4. LOSARTAN [Concomitant]
     Dosage: 25 mg, qd
  5. FLEXERIL                           /00428402/ [Concomitant]
     Dosage: 10 mg, prn
  6. NAPROXEN DELAYED RELEASE [Concomitant]
     Dosage: 500 mg, bid
  7. MULTIVITAMIN                       /00097801/ [Concomitant]
     Dosage: UNK UNK, qd
  8. ASPIRIN [Concomitant]
     Dosage: 81 mg, qd
  9. VITAMIN D3 [Concomitant]
     Dosage: 1000 IU, qd
  10. CALCIUM [Concomitant]
     Dosage: 600 mg, bid
  11. ZYRTEC [Concomitant]
     Dosage: 10 mg, qd
  12. METFORMIN [Concomitant]
     Dosage: 500 mg, qd

REACTIONS (2)
  - Sensation of heaviness [Recovered/Resolved]
  - Injection site erythema [Recovered/Resolved]
